FAERS Safety Report 19364462 (Version 3)
Quarter: 2021Q4

REPORT INFORMATION
  Report Type: Report from Study
  Country: US (occurrence: US)
  Receive Date: 20210603
  Receipt Date: 20211102
  Transmission Date: 20220303
  Serious: No
  Sender: FDA-Public Use
  Company Number: NVSC2021US117225

PATIENT
  Sex: Female

DRUGS (1)
  1. COSENTYX [Suspect]
     Active Substance: SECUKINUMAB
     Indication: Product used for unknown indication
     Dosage: UNK UNK, UNKNOWN
     Route: 065

REACTIONS (8)
  - COVID-19 [Unknown]
  - Pain of skin [Unknown]
  - Pruritus [Unknown]
  - Paraesthesia [Unknown]
  - Dry skin [Unknown]
  - Product dose omission issue [Unknown]
  - Alopecia [Unknown]
  - Skin burning sensation [Unknown]
